FAERS Safety Report 14106884 (Version 8)
Quarter: 2018Q3

REPORT INFORMATION
  Report Type: Spontaneous
  Country: US (occurrence: US)
  Receive Date: 20171018
  Receipt Date: 20180802
  Transmission Date: 20181010
  Serious: No
  Sender: FDA-Public Use
  Company Number: US-ACTELION-A-US2017-160889

PATIENT
  Age: 74 Year
  Sex: Female
  Weight: 70.3 kg

DRUGS (8)
  1. UPTRAVI [Suspect]
     Active Substance: SELEXIPAG
     Dosage: 600 MCG, IN AM, 400 MCG IN PM
     Route: 048
  2. DILTIAZEM. [Concomitant]
     Active Substance: DILTIAZEM
  3. UPTRAVI [Suspect]
     Active Substance: SELEXIPAG
     Dosage: 200 MCG, BID
     Route: 048
  4. OPSUMIT [Concomitant]
     Active Substance: MACITENTAN
     Indication: PULMONARY ARTERIAL HYPERTENSION
  5. ELIQUIS [Concomitant]
     Active Substance: APIXABAN
  6. XANAX [Concomitant]
     Active Substance: ALPRAZOLAM
  7. UPTRAVI [Suspect]
     Active Substance: SELEXIPAG
     Indication: PULMONARY ARTERIAL HYPERTENSION
     Dosage: 200 MCG, BID
     Route: 048
     Dates: start: 20171004, end: 201710
  8. UPTRAVI [Suspect]
     Active Substance: SELEXIPAG
     Dosage: 400 MCG, BID
     Route: 048

REACTIONS (22)
  - Headache [Unknown]
  - Faeces discoloured [Unknown]
  - Dyspnoea [Recovering/Resolving]
  - Insomnia [Recovering/Resolving]
  - Nervousness [Recovered/Resolved]
  - Asthenia [Recovered/Resolved]
  - Oxygen saturation decreased [Recovering/Resolving]
  - Pain in jaw [Unknown]
  - Tremor [Unknown]
  - Feeling abnormal [Unknown]
  - Flushing [Unknown]
  - Vision blurred [Recovering/Resolving]
  - Decreased appetite [Unknown]
  - Nausea [Unknown]
  - Decreased activity [Unknown]
  - Nasal congestion [Unknown]
  - Anxiety [Unknown]
  - Pain in extremity [Unknown]
  - Vomiting [Unknown]
  - Abdominal discomfort [Unknown]
  - Malaise [Recovered/Resolved]
  - Panic attack [Unknown]

NARRATIVE: CASE EVENT DATE: 20171005
